FAERS Safety Report 17822667 (Version 3)
Quarter: 2020Q3

REPORT INFORMATION
  Report Type: Spontaneous
  Country: US (occurrence: US)
  Receive Date: 20200526
  Receipt Date: 20200908
  Transmission Date: 20201102
  Serious: No
  Sender: FDA-Public Use
  Company Number: US-ASTRAZENECA-2020SE64695

PATIENT
  Age: 4775 Week
  Sex: Female

DRUGS (2)
  1. SYMBICORT [Suspect]
     Active Substance: BUDESONIDE\FORMOTEROL FUMARATE DIHYDRATE
     Indication: BRONCHIECTASIS
     Dosage: 2 INHALATIONS IN THE MORNING AND ONE INHALATION IN THE EVENING AS REQUIRED
     Route: 055
  2. SYMBICORT [Suspect]
     Active Substance: BUDESONIDE\FORMOTEROL FUMARATE DIHYDRATE
     Indication: BRONCHIECTASIS
     Dosage: 80/4.5 MCG, 2 INHALATIONS TWO TIMES A DAY
     Route: 055

REACTIONS (5)
  - Intentional product misuse [Unknown]
  - Wheezing [Not Recovered/Not Resolved]
  - Lung disorder [Not Recovered/Not Resolved]
  - Device malfunction [Unknown]
  - Initial insomnia [Unknown]

NARRATIVE: CASE EVENT DATE: 20200512
